FAERS Safety Report 14170194 (Version 1)
Quarter: 2017Q4

REPORT INFORMATION
  Report Type: Spontaneous
  Country: US (occurrence: US)
  Receive Date: 20171108
  Receipt Date: 20171108
  Transmission Date: 20180321
  Serious: No
  Sender: FDA-Public Use
  Company Number: US-BAYER-2017-215151

PATIENT
  Age: 62 Year
  Sex: Female
  Weight: 91 kg

DRUGS (1)
  1. MIRALAX [Suspect]
     Active Substance: POLYETHYLENE GLYCOL 3350
     Indication: CONSTIPATION
     Dosage: 1 DF, QD
     Route: 048
     Dates: start: 2005

REACTIONS (5)
  - Poor quality drug administered [Unknown]
  - Product use issue [Unknown]
  - Dyspnoea [Unknown]
  - Product taste abnormal [None]
  - Drug ineffective [Unknown]

NARRATIVE: CASE EVENT DATE: 2005
